FAERS Safety Report 4503982-2 (Version None)
Quarter: 2004Q4

REPORT INFORMATION
  Report Type: 
  Country: None (occurrence: None)
  Receive Date: 20041115
  Receipt Date: 20041025
  Transmission Date: 20050328
  Serious: Yes (Other)
  Sender: FDA-Public Use
  Company Number: 2004082796

PATIENT
  Age: 56 Year
  Sex: Female

DRUGS (3)
  1. NEOSPORIN (BACITRACIN ZINCE, NEOMYCIN, POLYMYXIN B SULFATE) [Suspect]
     Dosage: TOPICAL
     Route: 061
  2. DRUG UNSPECIFIED (DRUG UNSPECIFIED) [Concomitant]
  3. LANSOPRAZOLE [Concomitant]

REACTIONS (4)
  - HYPERSENSITIVITY [None]
  - SPEECH DISORDER [None]
  - SYNCOPE [None]
  - TREMOR [None]
